FAERS Safety Report 5982657-7 (Version None)
Quarter: 2008Q4

REPORT INFORMATION
  Report Type: 
  Country: None (occurrence: None)
  Receive Date: 20081208
  Receipt Date: 20080131
  Transmission Date: 20090506
  Serious: Yes (Other)
  Sender: FDA-Public Use
  Company Number: US-AMGEN-STX263286

PATIENT
  Sex: Female

DRUGS (3)
  1. ENBREL [Suspect]
     Indication: RHEUMATOID ARTHRITIS
     Route: 065
     Dates: start: 20040101, end: 20071201
  2. METHOTREXATE [Concomitant]
     Route: 058
  3. PREDNISONE TAB [Concomitant]
     Route: 048

REACTIONS (1)
  - BREAST CANCER IN SITU [None]
